FAERS Safety Report 9282757 (Version 1)
Quarter: 2013Q2

REPORT INFORMATION
  Report Type: Spontaneous
  Country: BR (occurrence: BR)
  Receive Date: 20130510
  Receipt Date: 20130510
  Transmission Date: 20140414
  Serious: Yes (Death, Hospitalization, Other)
  Sender: FDA-Public Use
  Company Number: PHHY2013BR045805

PATIENT
  Age: 64 Year
  Sex: Female

DRUGS (2)
  1. DIOVAN HCT [Suspect]
     Indication: BLOOD PRESSURE INADEQUATELY CONTROLLED
     Dosage: 1 DF, A DAY (VALS 160 MG / HYDR 12.5 MG)
     Route: 048
  2. VACCINES [Suspect]

REACTIONS (2)
  - Death [Fatal]
  - Fatigue [Unknown]
